FAERS Safety Report 17956261 (Version 1)
Quarter: 2020Q2

REPORT INFORMATION
  Report Type: Spontaneous
  Country: US (occurrence: US)
  Receive Date: 20200629
  Receipt Date: 20200629
  Transmission Date: 20200714
  Serious: No
  Sender: FDA-Public Use
  Company Number: US-GLAXOSMITHKLINE-US2020111499

PATIENT
  Sex: Female

DRUGS (1)
  1. ARNUITY ELLIPTA [Suspect]
     Active Substance: FLUTICASONE FUROATE
     Indication: EMPHYSEMA
     Dosage: UNK,AS NEEDED
     Route: 065

REACTIONS (4)
  - Painful respiration [Unknown]
  - Underdose [Unknown]
  - Product use in unapproved indication [Unknown]
  - Off label use [Unknown]
